FAERS Safety Report 4666825-2 (Version None)
Quarter: 2005Q2

REPORT INFORMATION
  Report Type: 
  Country: None (occurrence: None)
  Receive Date: 20050519
  Receipt Date: 20050119
  Transmission Date: 20051028
  Serious: Yes (Death)
  Sender: FDA-Public Use
  Company Number: US-MERCK-0501USA03238

PATIENT
  Age: 78 Year
  Sex: Male
  Weight: 64 kg

DRUGS (4)
  1. VIOXX [Suspect]
     Indication: ARTHRITIS
     Route: 048
     Dates: start: 20000101, end: 20021228
  2. ZOCOR [Concomitant]
     Indication: BLOOD CHOLESTEROL INCREASED
     Route: 048
     Dates: start: 19971228, end: 20021228
  3. ZOCOR [Concomitant]
     Indication: ATHEROSCLEROSIS
     Route: 048
     Dates: start: 19971228, end: 20021228
  4. TYLENOL (CAPLET) [Concomitant]
     Indication: ARTHRITIS
     Route: 065
     Dates: start: 19921228, end: 20021228

REACTIONS (5)
  - CORONARY ARTERY DISEASE [None]
  - EMOTIONAL DISTRESS [None]
  - GOUT [None]
  - HAEMATOCHEZIA [None]
  - MYOCARDIAL INFARCTION [None]
